FAERS Safety Report 9343861 (Version 2)
Quarter: 2013Q3

REPORT INFORMATION
  Report Type: Spontaneous
  Country: US (occurrence: US)
  Receive Date: 20130612
  Receipt Date: 20130730
  Transmission Date: 20140515
  Serious: No
  Sender: FDA-Public Use
  Company Number: US-PFIZER INC-2013172984

PATIENT
  Age: 51 Year
  Sex: Female
  Weight: 56.69 kg

DRUGS (1)
  1. ADVIL PM [Suspect]
     Dosage: UNK, ONCE A DAY
     Route: 048
     Dates: start: 20130602

REACTIONS (1)
  - Drug ineffective [Unknown]
